FAERS Safety Report 10642576 (Version 3)
Quarter: 2014Q4

REPORT INFORMATION
  Report Type: Report from Study
  Country: DE (occurrence: DE)
  Receive Date: 20141210
  Receipt Date: 20141216
  Transmission Date: 20150529
  Serious: Yes (Death, Hospitalization)
  Sender: FDA-Public Use
  Company Number: PHHO2014DE014767

PATIENT
  Age: 93 Year
  Sex: Female

DRUGS (1)
  1. CGP 57148B [Suspect]
     Active Substance: IMATINIB MESYLATE
     Indication: CHRONIC MYELOID LEUKAEMIA
     Dosage: 300MG AND 400 MG, QD
     Route: 048
     Dates: start: 20030424, end: 201409

REACTIONS (4)
  - Acute kidney injury [Fatal]
  - Metabolic acidosis [Fatal]
  - Bronchopneumonia [Fatal]
  - Cardiopulmonary failure [Fatal]

NARRATIVE: CASE EVENT DATE: 20140926
